FAERS Safety Report 16842085 (Version 1)
Quarter: 2019Q3

REPORT INFORMATION
  Report Type: Spontaneous
  Country: US (occurrence: US)
  Receive Date: 20190923
  Receipt Date: 20190923
  Transmission Date: 20191005
  Serious: Yes (Hospitalization, Other)
  Sender: FDA-Public Use
  Company Number: US-AUROBINDO-AUR-APL-2019-061993

PATIENT
  Age: 60 Year
  Sex: Male

DRUGS (1)
  1. POTASSIUM CHLORIDE. [Suspect]
     Active Substance: POTASSIUM CHLORIDE
     Indication: PRODUCT USED FOR UNKNOWN INDICATION
     Dosage: UNK
     Route: 048

REACTIONS (8)
  - Toxicity to various agents [Unknown]
  - Blood sodium increased [Unknown]
  - Dyspnoea [Unknown]
  - Cardiac arrest [Unknown]
  - Hyperkalaemia [Recovered/Resolved]
  - Intentional overdose [Unknown]
  - Bradycardia [Unknown]
  - Ileus [Unknown]
